FAERS Safety Report 5700429-5 (Version None)
Quarter: 2008Q2

REPORT INFORMATION
  Report Type: 
  Country: None (occurrence: None)
  Receive Date: 20080408
  Receipt Date: 20080408
  Transmission Date: 20081010
  Serious: Yes (Death)
  Sender: FDA-Public Use
  Company Number: None

PATIENT
  Sex: Male
  Weight: 101 kg

DRUGS (5)
  1. SUNITINIB 12.5MG PFIZER [Suspect]
     Indication: METASTATIC SALIVARY GLAND CANCER
     Dosage: 37.5MG DAILY PO
     Route: 048
     Dates: start: 20080222, end: 20080324
  2. BENICAR HCT [Concomitant]
  3. MULTI-VITAMIN [Concomitant]
  4. UROXATRAL [Concomitant]
  5. DEXAPRO [Concomitant]

REACTIONS (2)
  - HAEMOPTYSIS [None]
  - HAEMORRHAGE [None]
